FAERS Safety Report 8261933-1 (Version None)
Quarter: 2012Q2

REPORT INFORMATION
  Report Type: 
  Country: None (occurrence: None)
  Receive Date: 20120402
  Receipt Date: 20120316
  Transmission Date: 20120825
  Serious: Yes (Death)
  Sender: FDA-Public Use
  Company Number: 2012VX001302

PATIENT

DRUGS (3)
  1. CALCIUM FOLINATE (CALCIUM FOLINATE) [Suspect]
     Indication: HEPATIC NEOPLASM MALIGNANT
     Dosage: 200 MG/M**2; IV
     Route: 042
  2. OXALIPLATIN [Suspect]
     Indication: HEPATIC NEOPLASM MALIGNANT
     Dosage: 85 MG/M**2;  IV
     Route: 042
  3. FLUOROURACIL [Suspect]
     Indication: HEPATIC NEOPLASM MALIGNANT
     Dosage: 400 MG/M**2; IVBOL 2400 MG/M**2; IV
     Route: 040

REACTIONS (1)
  - NEUTROPENIC SEPSIS [None]
